FAERS Safety Report 17710576 (Version 2)
Quarter: 2020Q2

REPORT INFORMATION
  Report Type: Spontaneous
  Country: FR (occurrence: FR)
  Receive Date: 20200427
  Receipt Date: 20200507
  Transmission Date: 20200714
  Serious: Yes (Hospitalization)
  Sender: FDA-Public Use
  Company Number: FR-ACCORD-179675

PATIENT
  Age: 53 Year
  Sex: Male

DRUGS (2)
  1. FLUOROURACIL ACCORD [Suspect]
     Active Substance: FLUOROURACIL
     Indication: INTESTINAL ADENOCARCINOMA
     Dosage: STRENGTH:50 MG/ML,
     Route: 042
     Dates: start: 20200203, end: 20200316
  2. CARBOPLATIN ACCORD [Suspect]
     Active Substance: CARBOPLATIN
     Indication: INTESTINAL ADENOCARCINOMA
     Dosage: STRENGTH:10 MG/ML
     Route: 042
     Dates: start: 20200203, end: 20200316

REACTIONS (2)
  - Off label use [Unknown]
  - Warm type haemolytic anaemia [Not Recovered/Not Resolved]

NARRATIVE: CASE EVENT DATE: 20200311
